FAERS Safety Report 9718212 (Version 1)
Quarter: 2013Q4

REPORT INFORMATION
  Report Type: Spontaneous
  Country: US (occurrence: US)
  Receive Date: 20131127
  Receipt Date: 20131127
  Transmission Date: 20140711
  Serious: Yes (Other)
  Sender: FDA-Public Use
  Company Number: US-ACTAVIS-2013-21104

PATIENT
  Age: 31 Year
  Sex: Male

DRUGS (5)
  1. QUININE SULFATE [Suspect]
     Indication: DRUG ABUSE
     Dosage: UNK
     Route: 042
  2. QUINIDINE (WATSON LABORATORIES) [Suspect]
     Indication: DRUG ABUSE
     Dosage: UNK
     Route: 042
  3. ACETAMINOPHEN (UNKNOWN) [Suspect]
     Indication: DRUG ABUSE
     Dosage: UNK
     Route: 042
  4. METHADONE [Suspect]
     Indication: DRUG DEPENDENCE
     Dosage: 100 MG, DAILY
     Route: 048
  5. HEROIN [Suspect]
     Indication: DRUG ABUSE
     Dosage: UNK
     Route: 042

REACTIONS (5)
  - Supraventricular tachycardia [Recovering/Resolving]
  - Sinus bradycardia [Recovering/Resolving]
  - Bundle branch block right [Recovered/Resolved]
  - Atrioventricular dissociation [Unknown]
  - Drug abuse [Unknown]
